FAERS Safety Report 14872737 (Version 1)
Quarter: 2018Q2

REPORT INFORMATION
  Report Type: Spontaneous
  Country: US (occurrence: US)
  Receive Date: 20180510
  Receipt Date: 20180510
  Transmission Date: 20180711
  Serious: Yes (Hospitalization)
  Sender: FDA-Public Use
  Company Number: US-B.I. PHARMACEUTICALS,INC./RIDGEFIELD-2018-BI-024862

PATIENT
  Sex: Female
  Weight: 34 kg

DRUGS (10)
  1. ADVAIR HFA [Concomitant]
     Active Substance: FLUTICASONE PROPIONATE\SALMETEROL XINAFOATE
     Indication: CHRONIC OBSTRUCTIVE PULMONARY DISEASE
     Dosage: FORM STRENGTH: 250MCG/50MCG; FORMULATION: INHALATION AEROSOL
     Route: 055
     Dates: start: 2005
  2. CALCIUM WITH VITAMIN D [Concomitant]
     Active Substance: CALCIUM\VITAMIN D
     Indication: PRODUCT USED FOR UNKNOWN INDICATION
     Route: 048
  3. ALEVE [Concomitant]
     Active Substance: NAPROXEN SODIUM
     Indication: BACK PAIN
     Route: 048
  4. SPIRIVA [Suspect]
     Active Substance: TIOTROPIUM BROMIDE MONOHYDRATE
     Indication: PRODUCT USED FOR UNKNOWN INDICATION
     Route: 055
     Dates: start: 2008
  5. PREDNISONE. [Concomitant]
     Active Substance: PREDNISONE
     Indication: MYASTHENIA GRAVIS
     Route: 048
  6. MESTINON [Concomitant]
     Active Substance: PYRIDOSTIGMINE BROMIDE
     Indication: MYASTHENIA GRAVIS
     Route: 048
  7. MULTIVITAMIN [Concomitant]
     Active Substance: VITAMINS
     Indication: PRODUCT USED FOR UNKNOWN INDICATION
     Route: 048
  8. CELEXA [Concomitant]
     Active Substance: CITALOPRAM HYDROBROMIDE
     Indication: DEPRESSION
     Route: 048
  9. PROSOM [Concomitant]
     Active Substance: ESTAZOLAM
     Indication: SLEEP DISORDER
     Route: 048
  10. IMURAN [Concomitant]
     Active Substance: AZATHIOPRINE
     Indication: MYASTHENIA GRAVIS
     Route: 048

REACTIONS (10)
  - Myasthenia gravis [Not Recovered/Not Resolved]
  - Vomiting [Recovered/Resolved]
  - Pulmonary congestion [Not Recovered/Not Resolved]
  - Nausea [Recovered/Resolved]
  - Retching [Recovered/Resolved]
  - Anxiety [Recovered/Resolved]
  - Abnormal loss of weight [Not Recovered/Not Resolved]
  - Decreased appetite [Not Recovered/Not Resolved]
  - Lung disorder [Recovered/Resolved]
  - Decreased appetite [Recovered/Resolved]

NARRATIVE: CASE EVENT DATE: 2017
